FAERS Safety Report 6056714-3 (Version None)
Quarter: 2009Q1

REPORT INFORMATION
  Report Type: 
  Country: None (occurrence: None)
  Receive Date: 20090126
  Receipt Date: 20090126
  Transmission Date: 20090719
  Serious: Yes (Hospitalization)
  Sender: FDA-Public Use
  Company Number: None

PATIENT
  Sex: Male
  Weight: 67.3 kg

DRUGS (2)
  1. CISPLATIN [Suspect]
     Dosage: 140 MG
     Dates: end: 20090109
  2. TAXOTERE [Suspect]
     Dosage: 140 MG
     Dates: end: 20090109

REACTIONS (7)
  - ATRIAL FIBRILLATION [None]
  - BLOOD THYROID STIMULATING HORMONE DECREASED [None]
  - DEHYDRATION [None]
  - FEBRILE NEUTROPENIA [None]
  - GASTROINTESTINAL TOXICITY [None]
  - HYPOMAGNESAEMIA [None]
  - TACHYCARDIA [None]
